FAERS Safety Report 17543524 (Version 1)
Quarter: 2020Q1

REPORT INFORMATION
  Report Type: Spontaneous
  Country: NL (occurrence: NL)
  Receive Date: 20200316
  Receipt Date: 20200316
  Transmission Date: 20200409
  Serious: Yes (Hospitalization)
  Sender: FDA-Public Use
  Company Number: NL-ROCHE-2566300

PATIENT
  Age: 10 Year
  Sex: Female

DRUGS (6)
  1. CLARITHROMYCINE [Interacting]
     Active Substance: CLARITHROMYCIN
     Indication: PRODUCT USED FOR UNKNOWN INDICATION
     Route: 048
     Dates: start: 20090908, end: 20090911
  2. COMBIVENT [Concomitant]
     Active Substance: ALBUTEROL SULFATE\IPRATROPIUM BROMIDE
     Route: 065
     Dates: start: 20090615
  3. LOSEC [Concomitant]
     Active Substance: OMEPRAZOLE
     Dosage: TAKE 2 MG
     Route: 065
     Dates: start: 20090609
  4. LAMOTRIGINE. [Interacting]
     Active Substance: LAMOTRIGINE
     Indication: EPILEPSY
     Dosage: FIRST USED 75MG {2005; FROM 14/7/2009: 100MG
     Route: 048
  5. RIVOTRIL [Suspect]
     Active Substance: CLONAZEPAM
     Indication: PRODUCT USED FOR UNKNOWN INDICATION
     Dosage: 2.5 MG/ML
     Route: 065
     Dates: start: 20090831
  6. BACLOFEN. [Concomitant]
     Active Substance: BACLOFEN
     Dosage: 1MG/ML
     Route: 065
     Dates: start: 20090609

REACTIONS (2)
  - Drug interaction [Unknown]
  - Epilepsy [Recovered/Resolved]

NARRATIVE: CASE EVENT DATE: 20090911
